FAERS Safety Report 8988619 (Version 2)
Quarter: 2013Q1

REPORT INFORMATION
  Report Type: Spontaneous
  Country: FR (occurrence: FR)
  Receive Date: 20121228
  Receipt Date: 20130107
  Transmission Date: 20140127
  Serious: Yes (Hospitalization)
  Sender: FDA-Public Use
  Company Number: FR-PFIZER INC-2012324546

PATIENT
  Age: 50 Year
  Sex: Male

DRUGS (2)
  1. VFEND [Suspect]
     Indication: CEREBRAL ASPERGILLOSIS
     Dosage: 500 G, 1X/DAY
     Route: 048
     Dates: start: 199911, end: 200104
  2. VFEND [Suspect]
     Indication: PROPHYLAXIS
     Dosage: 200 G, 1X/DAY
     Dates: start: 200308, end: 200409

REACTIONS (4)
  - Squamous cell carcinoma of skin [Unknown]
  - Photosensitivity reaction [Recovered/Resolved]
  - Gamma-glutamyltransferase increased [Recovered/Resolved]
  - Alanine aminotransferase increased [Recovered/Resolved]
